FAERS Safety Report 17363421 (Version 1)
Quarter: 2020Q1

REPORT INFORMATION
  Report Type: Spontaneous
  Country: US (occurrence: US)
  Receive Date: 20200203
  Receipt Date: 20200203
  Transmission Date: 20200409
  Serious: Yes (Hospitalization)
  Sender: FDA-Public Use
  Company Number: US-NOVOPROD-707682

PATIENT
  Age: 49 Year
  Sex: Female

DRUGS (7)
  1. ELAGOLIX [Suspect]
     Active Substance: ELAGOLIX
     Dosage: 300 MG, BID (RESTARTED)
     Route: 048
     Dates: start: 20170616, end: 20170621
  2. FERROUS SULFATE. [Concomitant]
     Active Substance: FERROUS SULFATE
     Indication: ANAEMIA
     Dosage: 325 MG, TID
     Route: 048
     Dates: start: 20160824
  3. ACTIVELLA [Suspect]
     Active Substance: ESTRADIOL\NORETHINDRONE ACETATE
     Indication: UTERINE LEIOMYOMA
     Dosage: DAILY
     Route: 048
     Dates: start: 20161115, end: 20170527
  4. ACTIVELLA [Suspect]
     Active Substance: ESTRADIOL\NORETHINDRONE ACETATE
     Dosage: DAILY (RESTARTED)
     Route: 048
     Dates: start: 20170616, end: 20170621
  5. ELAGOLIX [Suspect]
     Active Substance: ELAGOLIX
     Indication: UTERINE LEIOMYOMA
     Dosage: 300 MG, BID
     Route: 048
     Dates: start: 20161115, end: 20170527
  6. DOCUSATE SODIUM. [Concomitant]
     Active Substance: DOCUSATE SODIUM
     Indication: CONSTIPATION PROPHYLAXIS
     Dosage: 100 MG, BID
     Route: 048
     Dates: start: 20160824
  7. ZOLOFT [Concomitant]
     Active Substance: SERTRALINE HYDROCHLORIDE
     Indication: DEPRESSION
     Dosage: 50 MG, PRN
     Route: 048
     Dates: start: 20170411

REACTIONS (5)
  - Cellulitis [Recovered/Resolved]
  - Arthropod bite [Unknown]
  - Off label use [Recovered/Resolved]
  - Acute kidney injury [Recovered/Resolved]
  - Septic shock [Recovered/Resolved]

NARRATIVE: CASE EVENT DATE: 20161115
